FAERS Safety Report 9591484 (Version 1)
Quarter: 2013Q4

REPORT INFORMATION
  Report Type: Spontaneous
  Country: US (occurrence: US)
  Receive Date: 20131003
  Receipt Date: 20131003
  Transmission Date: 20140711
  Serious: No
  Sender: FDA-Public Use
  Company Number: US-AMGEN-USASP2012082489

PATIENT
  Sex: Female
  Weight: 99.77 kg

DRUGS (7)
  1. ENBREL [Suspect]
     Indication: RHEUMATOID ARTHRITIS
     Dosage: UNK
  2. FOLIC ACID [Concomitant]
     Dosage: UNK
  3. GLIPIZIDE [Concomitant]
     Dosage: UNK
  4. LANTUS [Concomitant]
     Dosage: UNK
  5. METHOTREXATE [Concomitant]
  6. PRAVASTATIN [Concomitant]
     Dosage: UNK
  7. MOBIC [Concomitant]
     Dosage: UNK

REACTIONS (2)
  - Rash [Unknown]
  - Skin disorder [Unknown]
